FAERS Safety Report 9766638 (Version 2)
Quarter: 2014Q2

REPORT INFORMATION
  Report Type: Spontaneous
  Country: DE (occurrence: DE)
  Receive Date: 20131217
  Receipt Date: 20140618
  Transmission Date: 20141212
  Serious: Yes (Hospitalization)
  Sender: FDA-Public Use
  Company Number: DE-DRREDDYS-GER/GER/13/0036354

PATIENT
  Sex: Female

DRUGS (2)
  1. SERTRALINE [Suspect]
     Indication: DEPRESSION
     Route: 048
     Dates: start: 201102, end: 201210
  2. SERTRALINE [Suspect]
     Route: 048
     Dates: start: 201210, end: 201309

REACTIONS (1)
  - Enlarged clitoris [Not Recovered/Not Resolved]
